FAERS Safety Report 10665120 (Version 2)
Quarter: 2014Q4

REPORT INFORMATION
  Report Type: Spontaneous
  Country: US (occurrence: US)
  Receive Date: 20141219
  Receipt Date: 20141230
  Transmission Date: 20150529
  Serious: Yes (Hospitalization, Other)
  Sender: FDA-Public Use
  Company Number: US-GLAXOSMITHKLINE-US2014GSK037991

PATIENT
  Age: 40 Year
  Sex: Female

DRUGS (1)
  1. ORLISTAT [Suspect]
     Active Substance: ORLISTAT
     Indication: WEIGHT DECREASED
     Dosage: UNK

REACTIONS (13)
  - Liver function test abnormal [Unknown]
  - Asthenia [Unknown]
  - Coagulopathy [Unknown]
  - Nausea [Unknown]
  - Hepatic failure [Not Recovered/Not Resolved]
  - Dyspnoea [Unknown]
  - Cholestasis [Unknown]
  - Decreased appetite [Unknown]
  - Abdominal discomfort [Unknown]
  - Fatigue [Unknown]
  - Jaundice [Unknown]
  - Antinuclear antibody positive [Recovered/Resolved]
  - Encephalopathy [Unknown]
